FAERS Safety Report 8923321 (Version 1)
Quarter: 2012Q4

REPORT INFORMATION
  Report Type: 
  Country: CN (occurrence: CN)
  Receive Date: 20121123
  Receipt Date: 20121123
  Transmission Date: 20130627
  Serious: Yes (Other)
  Sender: FDA-Public Use
  Company Number: CN-JNJFOC-20121109208

PATIENT
  Age: 58 Year
  Sex: Male

DRUGS (2)
  1. REMICADE [Suspect]
     Indication: RHEUMATOID ARTHRITIS
     Route: 042
     Dates: start: 20120308
  2. REMICADE [Suspect]
     Indication: RHEUMATOID ARTHRITIS
     Dosage: fifth infusion
     Route: 042

REACTIONS (1)
  - Lymphoma [Not Recovered/Not Resolved]
